FAERS Safety Report 19222357 (Version 2)
Quarter: 2021Q2

REPORT INFORMATION
  Report Type: Spontaneous
  Country: PL (occurrence: PL)
  Receive Date: 20210506
  Receipt Date: 20210622
  Transmission Date: 20210717
  Serious: Yes (Other)
  Sender: FDA-Public Use
  Company Number: PL-LUPIN PHARMACEUTICALS INC.-2021-05944

PATIENT
  Sex: Female

DRUGS (4)
  1. GABAPENTIN. [Suspect]
     Active Substance: GABAPENTIN
     Indication: STIFF PERSON SYNDROME
     Dosage: MAXIMUM DAILY TOLERATED DOSE WAS 1800MG
     Route: 065
  2. DIAZEPAM. [Concomitant]
     Active Substance: DIAZEPAM
     Indication: STIFF PERSON SYNDROME
     Dosage: MAXIMUM DAILY TOLERATED DOSE WAS 14MG
     Route: 065
  3. METHYLPREDNISOLONE. [Suspect]
     Active Substance: METHYLPREDNISOLONE
     Indication: STIFF PERSON SYNDROME
     Dosage: THERAPEUTIC DOSE OF 1500MG
     Route: 065
  4. LEVETIRACETAM. [Suspect]
     Active Substance: LEVETIRACETAM
     Indication: STIFF PERSON SYNDROME
     Dosage: MAXIMUM DAILY TOLERATED DOSE WAS 1500MG
     Route: 065

REACTIONS (7)
  - Hyperglycaemia [Unknown]
  - Hypotension [Unknown]
  - Paradoxical drug reaction [Unknown]
  - Drug intolerance [Unknown]
  - Vertigo [Unknown]
  - Seizure [Unknown]
  - Tachycardia [Unknown]
